FAERS Safety Report 12648212 (Version 1)
Quarter: 2016Q3

REPORT INFORMATION
  Report Type: Spontaneous
  Country: JP (occurrence: JP)
  Receive Date: 20160812
  Receipt Date: 20160812
  Transmission Date: 20161109
  Serious: Yes (Other)
  Sender: FDA-Public Use
  Company Number: JP-PFIZER INC-2016372856

PATIENT
  Age: 31 Year
  Sex: Female

DRUGS (3)
  1. FLUOROURACIL 5 FU [Suspect]
     Active Substance: FLUOROURACIL
     Indication: INFLAMMATORY CARCINOMA OF THE BREAST
     Dosage: 750 MG/BODY
  2. CYCLOPHOSPHAMIDE. [Suspect]
     Active Substance: CYCLOPHOSPHAMIDE
     Indication: INFLAMMATORY CARCINOMA OF THE BREAST
     Dosage: 700 MG/BODY
  3. EPIRUBICIN HCL [Suspect]
     Active Substance: EPIRUBICIN HYDROCHLORIDE
     Indication: INFLAMMATORY CARCINOMA OF THE BREAST
     Dosage: 150 MG/BODY

REACTIONS (3)
  - Febrile neutropenia [Unknown]
  - Anaemia [Unknown]
  - Nausea [Unknown]
